FAERS Safety Report 23525817 (Version 6)
Quarter: 2025Q1

REPORT INFORMATION
  Report Type: Spontaneous
  Country: US (occurrence: US)
  Receive Date: 20240215
  Receipt Date: 20250205
  Transmission Date: 20250409
  Serious: No
  Sender: SANOFI AVENTIS
  Company Number: US-SA-SAC20240209001336

PATIENT
  Age: 77 Year
  Sex: Female

DRUGS (13)
  1. DUPIXENT [Suspect]
     Active Substance: DUPILUMAB
     Indication: Asthma
     Dosage: 300 MG, QOW
     Route: 058
  2. ATORVASTATIN [Concomitant]
     Active Substance: ATORVASTATIN
  3. BUPROPION HYDROCHLORIDE [Concomitant]
     Active Substance: BUPROPION HYDROCHLORIDE
  4. FLUOXETINE HYDROCHLORIDE [Concomitant]
     Active Substance: FLUOXETINE HYDROCHLORIDE
  5. HYDROXYZINE [Concomitant]
     Active Substance: HYDROXYZINE HYDROCHLORIDE
  6. LEVOTHYROXINE [Concomitant]
     Active Substance: LEVOTHYROXINE
  7. MONTELUKAST [Concomitant]
     Active Substance: MONTELUKAST
  8. PANTOPRAZOLE [Concomitant]
     Active Substance: PANTOPRAZOLE
  9. SYMBICORT [Concomitant]
     Active Substance: BUDESONIDE\FORMOTEROL FUMARATE DIHYDRATE
  10. TRAZODONE HCL [Concomitant]
     Active Substance: TRAZODONE HYDROCHLORIDE
  11. ASPIRIN [Concomitant]
     Active Substance: ASPIRIN
  12. BUDESONIDE [Concomitant]
     Active Substance: BUDESONIDE
  13. METOPROLOL [Concomitant]
     Active Substance: METOPROLOL

REACTIONS (11)
  - Chronic obstructive pulmonary disease [Not Recovered/Not Resolved]
  - Dyspnoea exertional [Unknown]
  - Chest discomfort [Unknown]
  - Sleep disorder due to a general medical condition [Not Recovered/Not Resolved]
  - Decreased appetite [Not Recovered/Not Resolved]
  - Decreased interest [Not Recovered/Not Resolved]
  - Disturbance in attention [Not Recovered/Not Resolved]
  - Malaise [Unknown]
  - Eye pruritus [Recovered/Resolved]
  - Arthralgia [Unknown]
  - Inappropriate schedule of product administration [Unknown]
